FAERS Safety Report 5919162-X (Version None)
Quarter: 2008Q4

REPORT INFORMATION
  Report Type: 
  Country: None (occurrence: None)
  Receive Date: 20081015
  Receipt Date: 20081006
  Transmission Date: 20090506
  Serious: Yes (Hospitalization, Other)
  Sender: FDA-Public Use
  Company Number: US-MERCK-0708USA04098

PATIENT
  Age: 62 Year
  Sex: Female
  Weight: 69 kg

DRUGS (11)
  1. FOSAMAX [Suspect]
     Indication: OSTEOPENIA
     Route: 048
     Dates: start: 20000501, end: 20060524
  2. [THERAPY UNSPECIFIED] [Concomitant]
     Indication: HYPERTENSION
     Route: 065
     Dates: start: 19960101
  3. [THERAPY UNSPECIFIED] [Concomitant]
     Indication: BLOOD CHOLESTEROL INCREASED
     Route: 065
     Dates: start: 20040101
  4. HORMONES (UNSPECIFIED) [Concomitant]
     Route: 065
  5. LASIX [Concomitant]
     Indication: FLUID RETENTION
     Route: 065
     Dates: start: 19770101
  6. ALBUTEROL [Concomitant]
     Indication: ASTHMA
     Route: 065
     Dates: start: 19900101
  7. SINGULAIR [Concomitant]
     Indication: ASTHMA
     Route: 048
  8. CELEXA [Concomitant]
     Indication: DEPRESSION
     Route: 065
     Dates: start: 19990101
  9. ADVAIR DISKUS 100/50 [Concomitant]
     Indication: ASTHMA
     Route: 065
     Dates: start: 19970101
  10. ZANTAC [Concomitant]
     Indication: GASTROOESOPHAGEAL REFLUX DISEASE
     Route: 065
  11. ESTRADIOL [Concomitant]
     Route: 065

REACTIONS (13)
  - BLADDER DISORDER [None]
  - BLOOD CHOLESTEROL INCREASED [None]
  - CEREBRAL DISORDER [None]
  - CHRONIC SINUSITIS [None]
  - COUGH [None]
  - DEMENTIA [None]
  - DYSPEPSIA [None]
  - FATIGUE [None]
  - MIGRAINE [None]
  - OSTEOMYELITIS [None]
  - OSTEONECROSIS [None]
  - TOOTH ABSCESS [None]
  - TOOTH INFECTION [None]
